FAERS Safety Report 18044510 (Version 4)
Quarter: 2020Q4

REPORT INFORMATION
  Report Type: Spontaneous
  Country: US (occurrence: US)
  Receive Date: 20200720
  Receipt Date: 20201015
  Transmission Date: 20210113
  Serious: No
  Sender: FDA-Public Use
  Company Number: US-BAYER-2020-144654

PATIENT
  Age: 47 Year
  Sex: Female

DRUGS (3)
  1. CLIMARA PRO [Suspect]
     Active Substance: ESTRADIOL\LEVONORGESTREL
     Indication: HORMONE REPLACEMENT THERAPY
     Dosage: UNK
     Route: 062
  2. CLIMARA PRO [Suspect]
     Active Substance: ESTRADIOL\LEVONORGESTREL
     Indication: HORMONE REPLACEMENT THERAPY
     Dosage: UNK
     Route: 062
     Dates: start: 202003, end: 20200712
  3. CLIMARA PRO [Suspect]
     Active Substance: ESTRADIOL\LEVONORGESTREL
     Indication: HORMONE REPLACEMENT THERAPY
     Dosage: UNK
     Route: 062

REACTIONS (9)
  - Application site burn [Not Recovered/Not Resolved]
  - Skin exfoliation [None]
  - Application site pruritus [None]
  - Application site pain [None]
  - Product adhesion issue [None]
  - Application site erythema [Not Recovered/Not Resolved]
  - Application site irritation [None]
  - Wrong technique in product usage process [None]
  - Application site rash [None]

NARRATIVE: CASE EVENT DATE: 2020
